FAERS Safety Report 10301155 (Version 1)
Quarter: 2014Q3

REPORT INFORMATION
  Report Type: Spontaneous
  Country: CA (occurrence: CA)
  Receive Date: 20140714
  Receipt Date: 20140714
  Transmission Date: 20150326
  Serious: Yes (Death)
  Sender: FDA-Public Use
  Company Number: CA-PFIZER INC-2014190906

PATIENT

DRUGS (5)
  1. CYCLOPHOSPHAMIDE. [Suspect]
     Active Substance: CYCLOPHOSPHAMIDE
     Dosage: 1 DF, EVERY 3 WEEKS
     Route: 065
  2. THERAPEUTIC RADIOPHARMACEUTICALS [Suspect]
     Active Substance: RADIATION THERAPY
     Dosage: UNK
     Route: 065
  3. EPIRUBICIN HCL [Suspect]
     Active Substance: EPIRUBICIN HYDROCHLORIDE
     Dosage: 1 DF, EVERY 3 WEEKS
     Route: 065
  4. DOCETAXEL [Suspect]
     Active Substance: DOCETAXEL
     Dosage: 35 MG/M2, WEEKLY
     Route: 065
  5. FLUOROURACIL. [Suspect]
     Active Substance: FLUOROURACIL
     Dosage: 1 DF, EVERY 3 WEEKS
     Route: 065

REACTIONS (1)
  - Death [Fatal]
